FAERS Safety Report 4880594-2 (Version None)
Quarter: 2006Q1

REPORT INFORMATION
  Report Type: 
  Country: None (occurrence: None)
  Receive Date: 20060113
  Receipt Date: 20050401
  Transmission Date: 20060701
  Serious: Yes (Hospitalization)
  Sender: FDA-Public Use
  Company Number: US-MERCK-0504USA00490

PATIENT
  Age: 60 Year
  Sex: Male
  Weight: 93 kg

DRUGS (10)
  1. VIOXX [Suspect]
     Indication: BACK PAIN
     Route: 048
     Dates: start: 20020101, end: 20040801
  2. ACETAMINOPHEN [Concomitant]
     Route: 065
  3. SYNTHROID [Concomitant]
     Route: 065
  4. ACTOS [Concomitant]
     Route: 065
  5. ALTACE [Concomitant]
     Route: 065
  6. ZETIA [Concomitant]
     Route: 065
  7. FLECAINIDE ACETATE [Concomitant]
     Route: 065
  8. DOXYCYCLINE [Concomitant]
     Route: 065
  9. CLONAZEPAM [Concomitant]
     Route: 065
  10. CRESTOR [Concomitant]
     Route: 065

REACTIONS (7)
  - ACUTE MYOCARDIAL INFARCTION [None]
  - ANXIETY [None]
  - CARDIAC ARREST [None]
  - CORONARY ARTERY DISEASE [None]
  - ISCHAEMIC STROKE [None]
  - MYOCARDIAL ISCHAEMIA [None]
  - SINUS BRADYCARDIA [None]
